FAERS Safety Report 21850385 (Version 1)
Quarter: 2023Q1

REPORT INFORMATION
  Report Type: Spontaneous
  Country: US (occurrence: US)
  Receive Date: 20230111
  Receipt Date: 20230111
  Transmission Date: 20230417
  Serious: Yes (Other)
  Sender: FDA-Public Use
  Company Number: US-INCYTE CORPORATION-2023IN000143

PATIENT

DRUGS (1)
  1. JAKAFI [Suspect]
     Active Substance: RUXOLITINIB
     Indication: Polycythaemia vera
     Dosage: 15 MILLIGRAM, BID (1 TABLET (15 MG TOTAL) IN THE MORNING AND 1 TABLET (15 MG TOTAL) IN THE EVENING)
     Route: 048

REACTIONS (2)
  - Device related infection [Unknown]
  - Arthropathy [Unknown]
